FAERS Safety Report 8471694-9 (Version None)
Quarter: 2012Q2

REPORT INFORMATION
  Report Type: 
  Country: None (occurrence: None)
  Receive Date: 20120627
  Receipt Date: 20110317
  Transmission Date: 20120825
  Serious: Yes (Other)
  Sender: FDA-Public Use
  Company Number: US-GLAXOSMITHKLINE-A0982042A

PATIENT
  Age: 27 Year
  Sex: Female

DRUGS (1)
  1. LAMICTAL XR [Suspect]
     Indication: EPILEPSY

REACTIONS (3)
  - MATERNAL EXPOSURE DURING PREGNANCY [None]
  - BLIGHTED OVUM [None]
  - ABORTION SPONTANEOUS [None]
